FAERS Safety Report 4288054-7 (Version None)
Quarter: 2004Q1

REPORT INFORMATION
  Report Type: 
  Country: None (occurrence: None)
  Receive Date: 20040209
  Receipt Date: 20031201
  Transmission Date: 20041129
  Serious: No
  Sender: FDA-Public Use
  Company Number: US-GLAXOSMITHKLINE-A0441441A

PATIENT
  Age: 50 Year
  Sex: Female

DRUGS (1)
  1. PAXIL [Suspect]
     Indication: DEPRESSION
     Dosage: 25MG PER DAY
     Route: 048

REACTIONS (7)
  - CHILLS [None]
  - DISTURBANCE IN ATTENTION [None]
  - FATIGUE [None]
  - FEELING HOT [None]
  - INSOMNIA [None]
  - MOOD SWINGS [None]
  - PAIN [None]
